FAERS Safety Report 6177550-3 (Version None)
Quarter: 2009Q2

REPORT INFORMATION
  Report Type: 
  Country: None (occurrence: None)
  Receive Date: 20090504
  Receipt Date: 20090424
  Transmission Date: 20091009
  Serious: Yes (Other)
  Sender: FDA-Public Use
  Company Number: US-ELI_LILLY_AND_COMPANY-US200904006544

PATIENT
  Age: 36 Year
  Sex: Female

DRUGS (3)
  1. CYMBALTA [Suspect]
     Dosage: 30 MG, UNK
     Dates: start: 20090405, end: 20090405
  2. ULTRAM [Concomitant]
     Dosage: 50 MG, DAILY (1/D)
  3. HUMIRA [Concomitant]
     Dosage: UNK, MONTHLY (1/M)
     Dates: start: 20070101

REACTIONS (6)
  - BLOOD PRESSURE INCREASED [None]
  - CHEST PAIN [None]
  - NAUSEA [None]
  - PALPITATIONS [None]
  - PRESYNCOPE [None]
  - TACHYCARDIA [None]
